FAERS Safety Report 20501515 (Version 1)
Quarter: 2022Q1

REPORT INFORMATION
  Report Type: Spontaneous
  Country: CN (occurrence: CN)
  Receive Date: 20220222
  Receipt Date: 20220222
  Transmission Date: 20220423
  Serious: Yes (Other)
  Sender: FDA-Public Use
  Company Number: CN-BAYER-2022A022997

PATIENT
  Age: 74 Year
  Sex: Male
  Weight: 47.1 kg

DRUGS (3)
  1. STIVARGA [Suspect]
     Active Substance: REGORAFENIB
     Indication: Colon cancer recurrent
     Dosage: 40 MG, QD
     Route: 048
     Dates: start: 20220112, end: 20220125
  2. PEMBROLIZUMAB [Suspect]
     Active Substance: PEMBROLIZUMAB
     Indication: Colon cancer recurrent
     Dosage: 200 MG, ONCE
     Route: 041
     Dates: start: 20220122, end: 20220122
  3. SODIUM CHLORIDE [Concomitant]
     Active Substance: SODIUM CHLORIDE
     Indication: Vehicle solution use
     Dosage: 100 ML, ONCE
     Route: 041
     Dates: start: 20220122, end: 20220122

REACTIONS (3)
  - Erythema [Recovering/Resolving]
  - Papule [Recovering/Resolving]
  - Off label use [None]

NARRATIVE: CASE EVENT DATE: 20220112
